FAERS Safety Report 18081526 (Version 2)
Quarter: 2020Q4

REPORT INFORMATION
  Report Type: Report from Study
  Country: US (occurrence: US)
  Receive Date: 20200728
  Receipt Date: 20201215
  Transmission Date: 20210113
  Serious: No
  Sender: FDA-Public Use
  Company Number: NVSC2020US208681

PATIENT
  Sex: Female

DRUGS (1)
  1. ENTRESTO [Suspect]
     Active Substance: SACUBITRIL\VALSARTAN
     Indication: CARDIAC FAILURE
     Dosage: 50 MG, BID (STARTED 6 MONTHS AGO, 24.26 MG)
     Route: 048

REACTIONS (4)
  - Weight increased [Recovering/Resolving]
  - Limb injury [Recovering/Resolving]
  - Weight decreased [Recovering/Resolving]
  - Diplopia [Unknown]
